FAERS Safety Report 4439042-9 (Version None)
Quarter: 2004Q3

REPORT INFORMATION
  Report Type: 
  Country: None (occurrence: None)
  Receive Date: 20040901
  Receipt Date: 20040826
  Transmission Date: 20050211
  Serious: Yes (Hospitalization)
  Sender: FDA-Public Use
  Company Number: FR-BRISTOL-MYERS SQUIBB COMPANY-12683827

PATIENT
  Age: 49 Year
  Sex: Female

DRUGS (5)
  1. CARBOPLATIN [Suspect]
     Indication: DRUG USE FOR UNKNOWN INDICATION
     Dosage: CYCLE 2: 12-MAY-2004, CYCLE 3:  26-MAY2004.
     Route: 042
     Dates: start: 20040421, end: 20040421
  2. PACLITAXEL [Suspect]
     Indication: DRUG USE FOR UNKNOWN INDICATION
     Dosage: CYCLE 2: 12-MAY-2004, CYCLE 3:  26-MAY2004.
     Route: 042
     Dates: start: 20040421, end: 20040421
  3. POLARAMINE [Suspect]
     Indication: DRUG USE FOR UNKNOWN INDICATION
     Route: 042
     Dates: start: 20040421, end: 20040526
  4. METHYLPREDNISOLONE [Suspect]
     Indication: DRUG USE FOR UNKNOWN INDICATION
     Route: 042
     Dates: start: 20040421, end: 20040526
  5. KYTRIL [Suspect]
     Indication: DRUG USE FOR UNKNOWN INDICATION
     Route: 042
     Dates: start: 20040421, end: 20040421

REACTIONS (1)
  - INTESTINAL OBSTRUCTION [None]
